FAERS Safety Report 5614325-5 (Version None)
Quarter: 2008Q1

REPORT INFORMATION
  Report Type: 
  Country: None (occurrence: None)
  Receive Date: 20080130
  Receipt Date: 20070216
  Transmission Date: 20080703
  Serious: No
  Sender: FDA-Public Use
  Company Number: NL01PV07.01493

PATIENT
  Sex: Male

DRUGS (2)
  1. PAROXETINE [Suspect]
     Dosage: QD
     Dates: start: 20010701
  2. CITALOPRAM HYDROBROMIDE [Concomitant]

REACTIONS (2)
  - DRUG WITHDRAWAL SYNDROME [None]
  - RESPIRATORY ARREST [None]
